FAERS Safety Report 7073915-6 (Version None)
Quarter: 2010Q4

REPORT INFORMATION
  Report Type: 
  Country: None (occurrence: None)
  Receive Date: 20101029
  Receipt Date: 20101026
  Transmission Date: 20110411
  Serious: Yes (Other)
  Sender: FDA-Public Use
  Company Number: US-BAYER-201027516NA

PATIENT
  Age: 53 Year
  Sex: Female

DRUGS (1)
  1. MAGNEVIST [Suspect]
     Indication: NUCLEAR MAGNETIC RESONANCE IMAGING
     Dosage: 2-3 CC
     Dates: start: 20100707, end: 20100707

REACTIONS (2)
  - BLOOD PRESSURE SYSTOLIC INCREASED [None]
  - FEELING HOT [None]
